FAERS Safety Report 15148184 (Version 2)
Quarter: 2018Q3

REPORT INFORMATION
  Report Type: Report from Study
  Country: DE (occurrence: DE)
  Receive Date: 20180716
  Receipt Date: 20180919
  Transmission Date: 20181010
  Serious: No
  Sender: FDA-Public Use
  Company Number: DE-ROCHE-2154829

PATIENT
  Age: 67 Year
  Sex: Female

DRUGS (4)
  1. OCREVUS [Suspect]
     Active Substance: OCRELIZUMAB
     Indication: MULTIPLE SCLEROSIS
     Route: 042
     Dates: start: 20180319
  2. TARGIN [Concomitant]
     Active Substance: NALOXONE HYDROCHLORIDE\OXYCODONE HYDROCHLORIDE
     Dosage: UP TO 3X PER DAY
     Route: 065
  3. CANDESARTAN. [Concomitant]
     Active Substance: CANDESARTAN
     Route: 065
  4. TEGRETAL [Concomitant]
     Active Substance: CARBAMAZEPINE
     Dosage: UP TO 5 TIMES PER DAY
     Route: 065

REACTIONS (6)
  - General physical health deterioration [Recovered/Resolved]
  - Trigeminal neuralgia [Recovered/Resolved]
  - Hordeolum [Recovered/Resolved]
  - Sinusitis [Recovered/Resolved]
  - Gait disturbance [Not Recovered/Not Resolved]
  - Balance disorder [Not Recovered/Not Resolved]

NARRATIVE: CASE EVENT DATE: 20180427
